FAERS Safety Report 5234787-5 (Version None)
Quarter: 2007Q1

REPORT INFORMATION
  Report Type: 
  Country: None (occurrence: None)
  Receive Date: 20070209
  Receipt Date: 20070130
  Transmission Date: 20070707
  Serious: Yes (Hospitalization)
  Sender: FDA-Public Use
  Company Number: JP-PFIZER INC-2006144245

PATIENT
  Sex: Female
  Weight: 40 kg

DRUGS (12)
  1. ZYVOX [Suspect]
     Indication: STAPHYLOCOCCAL INFECTION
     Dosage: DAILY DOSE:1200MG
     Route: 042
     Dates: start: 20061118, end: 20061121
  2. LOXONIN [Suspect]
     Indication: ARTHRALGIA
     Dosage: DAILY DOSE:180MG
     Route: 048
     Dates: start: 20060925, end: 20061121
  3. LOXONIN [Suspect]
     Indication: BACK PAIN
  4. LOXONIN [Suspect]
     Indication: CANCER PAIN
  5. HYPEN [Suspect]
     Indication: ARTHRALGIA
     Dosage: DAILY DOSE:400MG
     Route: 048
     Dates: start: 20061011, end: 20061111
  6. HYPEN [Suspect]
     Indication: BACK PAIN
  7. HYPEN [Suspect]
     Indication: CANCER PAIN
  8. VOLTAREN [Suspect]
     Indication: ARTHRALGIA
     Route: 054
     Dates: start: 20060925, end: 20061121
  9. VOLTAREN [Suspect]
     Indication: BACK PAIN
  10. VOLTAREN [Suspect]
     Indication: CANCER PAIN
  11. ISALON [Concomitant]
     Route: 048
  12. CHEMOTHERAPY NOS [Concomitant]

REACTIONS (4)
  - CATHETER RELATED INFECTION [None]
  - DRUG INEFFECTIVE [None]
  - DUODENAL ULCER HAEMORRHAGE [None]
  - STAPHYLOCOCCAL INFECTION [None]
